FAERS Safety Report 7768629-0 (Version None)
Quarter: 2011Q3

REPORT INFORMATION
  Report Type: 
  Country: None (occurrence: None)
  Receive Date: 20110922
  Receipt Date: 20110110
  Transmission Date: 20111222
  Serious: No
  Sender: FDA-Public Use
  Company Number: US-ASTRAZENECA-2011SE01827

PATIENT
  Sex: Female

DRUGS (9)
  1. SEROQUEL [Suspect]
     Indication: INSOMNIA
     Route: 048
  2. LOVAZA [Concomitant]
     Indication: HYPERCHOLESTEROLAEMIA
  3. ALPRAZOLOAM [Concomitant]
     Indication: ANXIETY DISORDER
  4. BONIVA [Concomitant]
     Indication: OSTEOPOROSIS
  5. CRESTOR [Concomitant]
     Indication: HYPERCHOLESTEROLAEMIA
     Route: 048
  6. AMLODIPINE BESYLATE [Concomitant]
     Indication: HYPERTENSION
  7. EFFEXOR XR [Concomitant]
     Indication: ANXIETY
  8. ZETIA [Concomitant]
     Indication: HYPERCHOLESTEROLAEMIA
  9. MICARDIS [Concomitant]
     Indication: HYPERTENSION

REACTIONS (4)
  - THERAPEUTIC RESPONSE UNEXPECTED [None]
  - BLOOD PRESSURE INCREASED [None]
  - STRESS [None]
  - SLEEP DISORDER [None]
